FAERS Safety Report 25329057 (Version 1)
Quarter: 2025Q2

REPORT INFORMATION
  Report Type: Report from Study
  Country: US (occurrence: US)
  Receive Date: 20250519
  Receipt Date: 20250519
  Transmission Date: 20250717
  Serious: Yes (Hospitalization)
  Sender: ARDELYX
  Company Number: US-ARDELYX-2024ARDX008008

PATIENT
  Sex: Female

DRUGS (3)
  1. XPHOZAH [Suspect]
     Active Substance: TENAPANOR HYDROCHLORIDE
     Indication: Hyperphosphataemia
     Route: 065
     Dates: start: 20241017, end: 202410
  2. XPHOZAH [Suspect]
     Active Substance: TENAPANOR HYDROCHLORIDE
     Route: 065
     Dates: start: 2024
  3. CALCIUM ACETATE [Concomitant]
     Active Substance: CALCIUM ACETATE
     Indication: Product used for unknown indication
     Route: 065

REACTIONS (5)
  - Hypokalaemia [Unknown]
  - Oedema peripheral [Unknown]
  - Dyspnoea [Unknown]
  - Pleural effusion [Unknown]
  - Aggression [Unknown]

NARRATIVE: CASE EVENT DATE: 20241101
